FAERS Safety Report 21827092 (Version 1)
Quarter: 2023Q1

REPORT INFORMATION
  Report Type: Spontaneous
  Country: US (occurrence: US)
  Receive Date: 20230106
  Receipt Date: 20230106
  Transmission Date: 20230418
  Serious: No
  Sender: FDA-Public Use
  Company Number: US-TEVA-2022-US-2839257

PATIENT
  Age: 69 Year
  Sex: Female

DRUGS (1)
  1. COPAXONE [Suspect]
     Active Substance: GLATIRAMER ACETATE
     Indication: Product used for unknown indication
     Route: 065

REACTIONS (4)
  - Panic attack [Unknown]
  - Palpitations [Unknown]
  - Fear of injection [Unknown]
  - Nervousness [Unknown]

NARRATIVE: CASE EVENT DATE: 20220101
